FAERS Safety Report 8213016-4 (Version None)
Quarter: 2012Q1

REPORT INFORMATION
  Report Type: 
  Country: None (occurrence: None)
  Receive Date: 20120315
  Receipt Date: 20120312
  Transmission Date: 20120608
  Serious: No
  Sender: FDA-Public Use
  Company Number: US-PFIZER INC-K201100812

PATIENT
  Sex: Male

DRUGS (1)
  1. LEVOXYL [Suspect]
     Indication: HYPOTHYROIDISM
     Dosage: 50 UG, 4X/DAY
     Route: 048
     Dates: start: 20110601

REACTIONS (9)
  - OEDEMA PERIPHERAL [None]
  - COUGH [None]
  - BLISTER [None]
  - ASTHENIA [None]
  - SKIN ODOUR ABNORMAL [None]
  - DRUG INEFFECTIVE [None]
  - RASH [None]
  - HEART RATE ABNORMAL [None]
  - RESPIRATORY DISORDER [None]
